FAERS Safety Report 11784546 (Version 2)
Quarter: 2015Q4

REPORT INFORMATION
  Report Type: Spontaneous
  Country: FR (occurrence: FR)
  Receive Date: 20151130
  Receipt Date: 20151209
  Transmission Date: 20160305
  Serious: Yes (Other)
  Sender: FDA-Public Use
  Company Number: FR-ZYDUS-009610

PATIENT
  Age: 80 Year
  Sex: Male

DRUGS (5)
  1. BISOPROLOL/BISOPROLOL FUMARATE/BISOPROLOL HEMIFUMARATE [Concomitant]
     Indication: PRODUCT USED FOR UNKNOWN INDICATION
     Dosage: 2.5 MG3
  2. CANDESARTAN/CANDESARTAN CILEXETIL [Concomitant]
     Indication: PRODUCT USED FOR UNKNOWN INDICATION
  3. OMEPRAZOLE. [Suspect]
     Active Substance: OMEPRAZOLE
     Indication: PRODUCT USED FOR UNKNOWN INDICATION
  4. SIMVASTATIN. [Concomitant]
     Active Substance: SIMVASTATIN
     Indication: PRODUCT USED FOR UNKNOWN INDICATION
  5. METHOTREXATE/METHOTREXATE SODIUM [Interacting]
     Active Substance: METHOTREXATE\METHOTREXATE SODIUM
     Indication: PRODUCT USED FOR UNKNOWN INDICATION
     Dosage: 40 MG/M2 (80 MG PER TREATMENT) WEEKLY

REACTIONS (6)
  - Blood creatine abnormal [Unknown]
  - Mucosal inflammation [Unknown]
  - Skin lesion [Unknown]
  - Drug interaction [Unknown]
  - Haemorrhage [Unknown]
  - Pancytopenia [Unknown]
